FAERS Safety Report 7529082-5 (Version None)
Quarter: 2011Q2

REPORT INFORMATION
  Report Type: 
  Country: None (occurrence: None)
  Receive Date: 20110607
  Receipt Date: 20110604
  Transmission Date: 20111010
  Serious: Yes (Death, Hospitalization)
  Sender: FDA-Public Use
  Company Number: PHHY2011BR48844

PATIENT
  Age: 74 Year
  Sex: Male

DRUGS (1)
  1. FORMOTEROL FUMARATE [Suspect]
     Indication: EMPHYSEMA
     Dosage: UNK, BID

REACTIONS (5)
  - ACUTE RESPIRATORY FAILURE [None]
  - CARDIAC DISORDER [None]
  - CONDITION AGGRAVATED [None]
  - PNEUMONIA [None]
  - KIDNEY INFECTION [None]
